FAERS Safety Report 18516016 (Version 6)
Quarter: 2021Q1

REPORT INFORMATION
  Report Type: Report from Study
  Country: CA (occurrence: CA)
  Receive Date: 20201118
  Receipt Date: 20210210
  Transmission Date: 20210419
  Serious: Yes (Hospitalization, Other)
  Sender: FDA-Public Use
  Company Number: CA-GLAXOSMITHKLINE-CA2020AMR224590

PATIENT
  Age: 57 Year
  Sex: Female

DRUGS (5)
  1. MEPOLIZUMAB [Suspect]
     Active Substance: MEPOLIZUMAB
     Indication: ASTHMA
     Dosage: 100 MG, Z (MONTHLY), 28 DAYS
     Route: 058
     Dates: start: 20181010
  2. VENTOLIN [Suspect]
     Active Substance: ALBUTEROL SULFATE
     Indication: PRODUCT USED FOR UNKNOWN INDICATION
     Dosage: 100 ?G, AS NEEDED
  3. BREO ELLIPTA [Suspect]
     Active Substance: FLUTICASONE FUROATE\VILANTEROL TRIFENATATE
     Indication: PRODUCT USED FOR UNKNOWN INDICATION
     Dosage: 200/25 MCG, 2 PUFF(S), BID
  4. PREDNISONE. [Suspect]
     Active Substance: PREDNISONE
     Dosage: 2 MG, QD
  5. PREDNISONE. [Suspect]
     Active Substance: PREDNISONE
     Indication: PRODUCT USED FOR UNKNOWN INDICATION
     Dosage: 5 MG, QD

REACTIONS (10)
  - Intervertebral disc compression [Unknown]
  - Cystitis [Unknown]
  - Spinal column injury [Recovered/Resolved]
  - Nasopharyngitis [Unknown]
  - Micturition urgency [Unknown]
  - Back pain [Recovering/Resolving]
  - Asthma [Unknown]
  - Hospitalisation [Recovering/Resolving]
  - Adrenal insufficiency [Unknown]
  - Dysuria [Unknown]

NARRATIVE: CASE EVENT DATE: 202001
